FAERS Safety Report 8273145-6 (Version None)
Quarter: 2012Q2

REPORT INFORMATION
  Report Type: 
  Country: None (occurrence: None)
  Receive Date: 20120411
  Receipt Date: 20120407
  Transmission Date: 20120825
  Serious: Yes (Other)
  Sender: FDA-Public Use
  Company Number: AU-PFIZER INC-2012088464

PATIENT
  Sex: Male

DRUGS (1)
  1. NORVASC [Suspect]

REACTIONS (5)
  - BLOOD IRON DECREASED [None]
  - RED BLOOD CELL MICROCYTES [None]
  - OEDEMA [None]
  - HAEMORRHAGE [None]
  - BLOOD PRESSURE INCREASED [None]
